FAERS Safety Report 10330895 (Version 1)
Quarter: 2014Q3

REPORT INFORMATION
  Report Type: Spontaneous
  Country: US (occurrence: US)
  Receive Date: 20140722
  Receipt Date: 20140722
  Transmission Date: 20150326
  Serious: No
  Sender: FDA-Public Use
  Company Number: US-DRREDDYS-USA/USA/14/0041129

PATIENT
  Age: 33 Year
  Sex: Male
  Weight: 70.7 kg

DRUGS (2)
  1. ZENATANE [Suspect]
     Active Substance: ISOTRETINOIN
     Indication: ACNE
     Dosage: 40 MG DAILY EVERY OTHER DAY
     Route: 048
     Dates: start: 201404
  2. ZENATANE [Suspect]
     Active Substance: ISOTRETINOIN
     Dosage: 80 MG DAILY EVERY OTHER DAY
     Dates: start: 201404

REACTIONS (2)
  - Lip dry [Not Recovered/Not Resolved]
  - Nasal dryness [Recovered/Resolved]

NARRATIVE: CASE EVENT DATE: 201404
